FAERS Safety Report 8376307-2 (Version None)
Quarter: 2012Q2

REPORT INFORMATION
  Report Type: 
  Country: None (occurrence: None)
  Receive Date: 20120522
  Receipt Date: 20120510
  Transmission Date: 20120825
  Serious: Yes (Hospitalization)
  Sender: FDA-Public Use
  Company Number: US-JNJFOC-20120511805

PATIENT
  Sex: Male
  Weight: 24.3 kg

DRUGS (5)
  1. KETOCONAZOLE [Concomitant]
  2. PREVACID [Concomitant]
  3. REMICADE [Suspect]
     Indication: INFLAMMATORY BOWEL DISEASE
     Route: 042
     Dates: start: 20100916
  4. MULTIVITAMIN [Concomitant]
  5. METHOTREXATE [Concomitant]

REACTIONS (1)
  - COLONIC STENOSIS [None]
